FAERS Safety Report 16882995 (Version 2)
Quarter: 2019Q4

REPORT INFORMATION
  Report Type: Report from Study
  Country: AU (occurrence: AU)
  Receive Date: 20191004
  Receipt Date: 20191108
  Transmission Date: 20200122
  Serious: Yes (Hospitalization)
  Sender: FDA-Public Use
  Company Number: AU-REGENERON PHARMACEUTICALS, INC.-2019-55465

PATIENT

DRUGS (2)
  1. EYLEA [Suspect]
     Active Substance: AFLIBERCEPT
     Indication: NEOVASCULAR AGE-RELATED MACULAR DEGENERATION
     Dosage: UNK UNK, Q2MON
     Route: 031
     Dates: start: 201801
  2. POVIDONE-IODINE. [Suspect]
     Active Substance: POVIDONE-IODINE
     Indication: PRODUCT USED FOR UNKNOWN INDICATION

REACTIONS (7)
  - Blindness unilateral [Unknown]
  - Eye irritation [Unknown]
  - Dizziness [Not Recovered/Not Resolved]
  - Ageusia [Not Recovered/Not Resolved]
  - Stent placement [Unknown]
  - Corneal abrasion [Unknown]
  - Balance disorder [Unknown]

NARRATIVE: CASE EVENT DATE: 201812
